FAERS Safety Report 10221703 (Version 2)
Quarter: 2014Q2

REPORT INFORMATION
  Report Type: Spontaneous
  Country: US (occurrence: US)
  Receive Date: 20140606
  Receipt Date: 20140626
  Transmission Date: 20141212
  Serious: No
  Sender: FDA-Public Use
  Company Number: US-PFIZER INC-2014153206

PATIENT
  Age: 83 Year
  Sex: Female
  Weight: 62.59 kg

DRUGS (13)
  1. XELJANZ [Suspect]
     Dosage: 5 MG, 2X/DAY
     Route: 048
  2. LOSARTAN POTASSIUM [Concomitant]
     Dosage: 25 MG, UNK
  3. BYSTOLIC [Concomitant]
     Dosage: 10 MG, UNK
  4. SIMVASTATIN [Concomitant]
     Dosage: 20 MG, UNK
  5. SERTRALINE [Concomitant]
     Dosage: 25 MG, UNK
  6. PANTOPRAZOLE [Concomitant]
     Dosage: 40 MG, UNK
  7. WARFARIN [Concomitant]
     Dosage: 3 MG, UNK
  8. GABAPENTIN [Concomitant]
     Dosage: 400 MG, UNK
  9. METHOTREXATE [Concomitant]
     Dosage: 2.5 MG, UNK
  10. BONIVA [Concomitant]
     Dosage: 2.5 MG, UNK
  11. CALCIUM [Concomitant]
     Dosage: 500, UNK
  12. BIOTIN [Concomitant]
     Dosage: 1 MG, UNK
  13. FOLIC ACID [Concomitant]
     Dosage: UNK

REACTIONS (1)
  - Drug ineffective [Unknown]
